FAERS Safety Report 20297232 (Version 2)
Quarter: 2022Q1

REPORT INFORMATION
  Report Type: Spontaneous
  Country: US (occurrence: US)
  Receive Date: 20220105
  Receipt Date: 20220204
  Transmission Date: 20220423
  Serious: No
  Sender: FDA-Public Use
  Company Number: US-ORGANON-O2112USA002476

PATIENT
  Sex: Female
  Weight: 114.29 kg

DRUGS (1)
  1. NEXPLANON [Suspect]
     Active Substance: ETONOGESTREL
     Indication: Contraception
     Dosage: 68 MG EVERY 3 YEARS
     Route: 059
     Dates: start: 20191105, end: 20211217

REACTIONS (2)
  - Device breakage [Recovered/Resolved]
  - No adverse event [Unknown]
